FAERS Safety Report 12146005 (Version 1)
Quarter: 2016Q1

REPORT INFORMATION
  Report Type: Spontaneous
  Country: US (occurrence: US)
  Receive Date: 20160304
  Receipt Date: 20160304
  Transmission Date: 20160526
  Serious: No
  Sender: FDA-Public Use
  Company Number: US-PERRIGO-15US004694

PATIENT
  Age: 32 Year
  Sex: Female
  Weight: 90.7 kg

DRUGS (1)
  1. NAPROXEN SODIUM 220 MG 368 [Suspect]
     Active Substance: NAPROXEN SODIUM
     Indication: TOOTHACHE
     Dosage: 660 MG, SINGLE
     Route: 048
     Dates: start: 20150504, end: 20150504

REACTIONS (4)
  - Expired product administered [Recovered/Resolved]
  - Incorrect dose administered [Recovered/Resolved]
  - Nausea [Unknown]
  - Somnolence [Unknown]

NARRATIVE: CASE EVENT DATE: 20150504
